FAERS Safety Report 8475502-1 (Version None)
Quarter: 2012Q2

REPORT INFORMATION
  Report Type: 
  Country: None (occurrence: None)
  Receive Date: 20120628
  Receipt Date: 20120613
  Transmission Date: 20120825
  Serious: Yes (Hospitalization)
  Sender: FDA-Public Use
  Company Number: ZA-ROCHE-633183

PATIENT
  Age: 17 Year
  Sex: Male

DRUGS (6)
  1. ISOTRETINOIN [Suspect]
     Dosage: DOSE LOWERED.
     Route: 048
  2. PREDNISONE TAB [Suspect]
     Indication: PRODUCT USED FOR UNKNOWN INDICATION
  3. ISOTRETINOIN [Suspect]
     Dosage: DOSE INCREASED
     Route: 048
  4. ISOTRETINOIN [Suspect]
     Indication: ACNE
  5. CORTISONE ACETATE [Suspect]
     Indication: ACNE
     Route: 048
  6. PREDNISONE TAB [Suspect]
     Indication: ACNE
     Dosage: DOSE, FREQUENCY UNSPECIFIED.
     Route: 048

REACTIONS (3)
  - ABDOMINAL PAIN [None]
  - OSTEONECROSIS [None]
  - ACNE [None]
